FAERS Safety Report 17245491 (Version 2)
Quarter: 2020Q1

REPORT INFORMATION
  Report Type: Report from Study
  Country: GB (occurrence: GB)
  Receive Date: 20200108
  Receipt Date: 20200203
  Transmission Date: 20200409
  Serious: Yes (Hospitalization, Other)
  Sender: FDA-Public Use
  Company Number: GB-BRISTOL-MYERS SQUIBB COMPANY-BMS-2019-082775

PATIENT
  Sex: Female

DRUGS (1)
  1. ABATACEPT [Suspect]
     Active Substance: ABATACEPT
     Indication: RHEUMATOID ARTHRITIS
     Dosage: 125 MILLIGRAM, QWK
     Route: 058
     Dates: start: 2019

REACTIONS (8)
  - Malaise [Unknown]
  - Condition aggravated [Unknown]
  - Diarrhoea [Unknown]
  - Gastroenteritis [Unknown]
  - Vomiting [Unknown]
  - Pleurisy [Unknown]
  - Immunodeficiency [Unknown]
  - Bronchitis [Unknown]
